FAERS Safety Report 18132120 (Version 2)
Quarter: 2020Q4

REPORT INFORMATION
  Report Type: Report from Study
  Country: US (occurrence: US)
  Receive Date: 20200811
  Receipt Date: 20201019
  Transmission Date: 20210113
  Serious: Yes (Hospitalization, Other)
  Sender: FDA-Public Use
  Company Number: US-SUN PHARMACEUTICAL INDUSTRIES LTD-2020R1-256953

PATIENT
  Age: 72 Year
  Sex: Female

DRUGS (4)
  1. BOSENTAN. [Suspect]
     Active Substance: BOSENTAN
     Indication: PRODUCT USED FOR UNKNOWN INDICATION
     Dosage: 125 MILLIGRAM, BID
     Route: 048
     Dates: start: 202005
  2. BOSENTAN. [Suspect]
     Active Substance: BOSENTAN
     Dosage: 125 MILLIGRAM, BID
     Route: 048
     Dates: start: 201509
  3. NITROGLYCERIN. [Interacting]
     Active Substance: NITROGLYCERIN
     Indication: PRODUCT USED FOR UNKNOWN INDICATION
     Route: 065
  4. SILDENAFIL. [Interacting]
     Active Substance: SILDENAFIL
     Indication: PRODUCT USED FOR UNKNOWN INDICATION
     Route: 065

REACTIONS (4)
  - Urinary tract infection [Unknown]
  - Haematemesis [Unknown]
  - Oesophagitis [Unknown]
  - Constipation [Unknown]

NARRATIVE: CASE EVENT DATE: 20200717
